FAERS Safety Report 17678842 (Version 4)
Quarter: 2022Q2

REPORT INFORMATION
  Report Type: Spontaneous
  Country: IT (occurrence: IT)
  Receive Date: 20200417
  Receipt Date: 20220610
  Transmission Date: 20220720
  Serious: Yes (Other)
  Sender: FDA-Public Use
  Company Number: IT-MINISAL02-613871

PATIENT
  Age: 92 Year
  Sex: Female

DRUGS (11)
  1. ATENOLOL [Interacting]
     Active Substance: ATENOLOL
     Indication: Tachycardia
     Dosage: 50 MILLIGRAM, ONCE A DAY
     Route: 048
  2. FUROSEMIDE [Interacting]
     Active Substance: FUROSEMIDE
     Indication: Hepatic failure
     Dosage: 50 MILLIGRAM, ONCE A DAY
     Route: 048
  3. FUROSEMIDE [Interacting]
     Active Substance: FUROSEMIDE
     Indication: Cardiomyopathy
  4. LOSARTAN [Interacting]
     Active Substance: LOSARTAN
     Indication: Hypertension
     Dosage: 50 MILLIGRAM, ONCE A DAY
     Route: 048
  5. FUROSEMIDE\SPIRONOLACTONE [Interacting]
     Active Substance: FUROSEMIDE\SPIRONOLACTONE
     Indication: Cardiac failure
     Dosage: 25 MILLIGRAM, ONCE A DAY
     Route: 048
  6. FUROSEMIDE\SPIRONOLACTONE [Interacting]
     Active Substance: FUROSEMIDE\SPIRONOLACTONE
     Indication: Cardiomyopathy
  7. LANSOPRAZOLE [Concomitant]
     Active Substance: LANSOPRAZOLE
     Indication: Product used for unknown indication
     Dosage: UNK
     Route: 065
  8. LEVETIRACETAM [Concomitant]
     Active Substance: LEVETIRACETAM
     Indication: Product used for unknown indication
     Dosage: UNK
     Route: 065
  9. TIMOLOL MALEATE\TRAVOPROST [Concomitant]
     Active Substance: TIMOLOL MALEATE\TRAVOPROST
     Indication: Product used for unknown indication
     Dosage: UNK
     Route: 065
  10. COUMADIN [Concomitant]
     Active Substance: WARFARIN SODIUM
     Indication: Product used for unknown indication
     Dosage: UNK
     Route: 065
  11. TRAZODONE HYDROCHLORIDE [Concomitant]
     Active Substance: TRAZODONE HYDROCHLORIDE
     Indication: Product used for unknown indication
     Dosage: UNK
     Route: 065

REACTIONS (4)
  - Bradycardia [Recovering/Resolving]
  - Hypotension [Recovering/Resolving]
  - Orthostatic hypotension [Recovering/Resolving]
  - Drug interaction [Recovering/Resolving]

NARRATIVE: CASE EVENT DATE: 20200314
